FAERS Safety Report 15678505 (Version 1)
Quarter: 2018Q4

REPORT INFORMATION
  Report Type: Spontaneous
  Country: US (occurrence: US)
  Receive Date: 20181130
  Receipt Date: 20181130
  Transmission Date: 20190205
  Serious: Yes (Disabling)
  Sender: FDA-Public Use
  Company Number: None

PATIENT
  Age: 36 Year
  Sex: Female
  Weight: 69.75 kg

DRUGS (4)
  1. AIMOVIG [Suspect]
     Active Substance: ERENUMAB-AOOE
     Indication: MIGRAINE
     Dosage: ?          QUANTITY:2 INJECTION(S);OTHER FREQUENCY:MONTHLY;?
     Route: 058
     Dates: start: 20180815, end: 20181015
  2. FROVA [Concomitant]
     Active Substance: FROVATRIPTAN SUCCINATE
  3. LUNESTA [Concomitant]
     Active Substance: ESZOPICLONE
  4. TOPAMAX [Concomitant]
     Active Substance: TOPIRAMATE

REACTIONS (10)
  - Arthralgia [None]
  - Therapy change [None]
  - Anxiety [None]
  - Chest pain [None]
  - Palpitations [None]
  - Constipation [None]
  - Muscle twitching [None]
  - Libido decreased [None]
  - Feeling jittery [None]
  - Treatment failure [None]

NARRATIVE: CASE EVENT DATE: 20180920
